FAERS Safety Report 9107361 (Version 1)
Quarter: 2013Q1

REPORT INFORMATION
  Report Type: Spontaneous
  Country: US (occurrence: US)
  Receive Date: 20130221
  Receipt Date: 20130221
  Transmission Date: 20140127
  Serious: Yes (Hospitalization)
  Sender: FDA-Public Use
  Company Number: US-BAYER-2013-020354

PATIENT
  Age: 77 Year
  Sex: Female

DRUGS (12)
  1. BAYER GENUINE ASPIRIN ORIGINAL STRENGTH [Suspect]
  2. SAXAGLIPTIN [Suspect]
  3. HUMALOG [Suspect]
     Indication: TYPE 2 DIABETES MELLITUS
     Dosage: 16 IU, UNK
  4. LEVEMIR [Suspect]
     Indication: TYPE 2 DIABETES MELLITUS
     Dosage: 80 IU, UNK
  5. ANTICOAGULANT [Concomitant]
  6. CALCIUM ANTAGONIST [Concomitant]
  7. BETA BLOCKING AGENTS [Concomitant]
  8. STATIN [Concomitant]
  9. ACE INHIBITOR NOS [Concomitant]
  10. ANGIOTENSIN II ANTAGONISTS [Concomitant]
  11. DIURETICS [Concomitant]
  12. ANTIARRHYTHMICS, CLASS I AND III [Concomitant]

REACTIONS (3)
  - Subdural haematoma [Recovered/Resolved]
  - Fall [Recovered/Resolved]
  - Neck pain [Recovered/Resolved]
